FAERS Safety Report 9831564 (Version 2)
Quarter: 2014Q1

REPORT INFORMATION
  Report Type: Spontaneous
  Country: JP (occurrence: JP)
  Receive Date: 20140121
  Receipt Date: 20140206
  Transmission Date: 20141002
  Serious: Yes (Death, Hospitalization)
  Sender: FDA-Public Use
  Company Number: JP-JNJFOC-20140106104

PATIENT
  Age: 77 Year
  Sex: Male
  Weight: 80 kg

DRUGS (14)
  1. XARELTO [Suspect]
     Indication: ATRIAL FIBRILLATION
     Route: 048
     Dates: start: 20131106, end: 20140106
  2. XARELTO [Suspect]
     Indication: CEREBROVASCULAR ACCIDENT PROPHYLAXIS
     Route: 048
     Dates: start: 20131106, end: 20140106
  3. PREMINENT [Concomitant]
     Indication: HYPERTENSION
     Route: 048
     Dates: end: 20140106
  4. LANIRAPID [Concomitant]
     Indication: ATRIAL FIBRILLATION
     Route: 048
  5. HERBESSER R [Concomitant]
     Indication: ANGINA PECTORIS
     Route: 048
     Dates: end: 20140106
  6. MEXITIL [Concomitant]
     Indication: VENTRICULAR ARRHYTHMIA
     Route: 048
  7. ISOSORBIDE DINITRATE [Concomitant]
     Indication: ANGINA PECTORIS
     Route: 048
     Dates: end: 20140106
  8. UBIDECARENONE [Concomitant]
     Indication: CARDIAC FAILURE
     Route: 048
  9. MANIDIPINE HYDROCHLORIDE [Concomitant]
     Indication: HYPERTENSION
     Route: 048
     Dates: end: 20140106
  10. URSO [Concomitant]
     Indication: HEPATIC FUNCTION ABNORMAL
     Route: 048
     Dates: end: 20140106
  11. SELBEX [Concomitant]
     Indication: GASTRITIS
     Route: 048
     Dates: end: 20140106
  12. GLYCYRRHIZIC ACID [Concomitant]
     Indication: HEPATIC FUNCTION ABNORMAL
     Route: 048
     Dates: end: 20140106
  13. CERNILTON [Concomitant]
     Indication: BENIGN PROSTATIC HYPERPLASIA
     Route: 048
     Dates: end: 20140106
  14. IMIDAFENACIN [Concomitant]
     Indication: BENIGN PROSTATIC HYPERPLASIA
     Route: 048
     Dates: end: 20140106

REACTIONS (2)
  - Pneumonia [Fatal]
  - Pulmonary alveolar haemorrhage [Fatal]
